FAERS Safety Report 4791511-8 (Version None)
Quarter: 2005Q4

REPORT INFORMATION
  Report Type: 
  Country: None (occurrence: None)
  Receive Date: 20051007
  Receipt Date: 20041206
  Transmission Date: 20060501
  Serious: No
  Sender: FDA-Public Use
  Company Number: US-BRISTOL-MYERS SQUIBB COMPANY-12785150

PATIENT
  Sex: Female

DRUGS (5)
  1. AVAPRO [Suspect]
     Indication: HYPERTENSION
     Dosage: 1/2 150MG TABLET DAILY
     Route: 048
     Dates: start: 19980101
  2. LEVOXYL [Concomitant]
  3. LANOXIN [Concomitant]
     Route: 048
  4. ASPIRIN [Concomitant]
     Dosage: 81MG OR 325MG DAILY
  5. TYLENOL (CAPLET) [Concomitant]
     Indication: ARTHRITIS
     Dosage: 2 TABS AS NEEDED
     Route: 048

REACTIONS (3)
  - BLOOD PRESSURE INCREASED [None]
  - DRUG INEFFECTIVE [None]
  - FEELING ABNORMAL [None]
